FAERS Safety Report 9384767 (Version 2)
Quarter: 2013Q3

REPORT INFORMATION
  Report Type: Report from Study
  Country: DE (occurrence: DE)
  Receive Date: 20130705
  Receipt Date: 20130711
  Transmission Date: 20140515
  Serious: Yes (Hospitalization)
  Sender: FDA-Public Use
  Company Number: DE-PFIZER INC-2013198274

PATIENT
  Age: 77 Year
  Sex: Female

DRUGS (6)
  1. CITALOPRAM [Suspect]
     Dosage: UNK
  2. TREVILOR RETARD [Suspect]
     Dosage: UNK
  3. TRASTUZUMAB [Suspect]
     Indication: BREAST CANCER
     Dosage: 600 MG, EVERY 3 WEEKS
     Route: 058
     Dates: start: 20121213
  4. L-THYROXIN [Concomitant]
     Dosage: 150 UG DAILY
     Dates: start: 1987
  5. SIMVAHEXAL [Concomitant]
     Dosage: 20 MG, DAILY
     Dates: start: 2008
  6. TORASEMIDE [Concomitant]
     Dosage: 100 MG, DAILY
     Dates: start: 2008

REACTIONS (1)
  - Aphasia [Recovered/Resolved]
